FAERS Safety Report 8517263-3 (Version None)
Quarter: 2012Q3

REPORT INFORMATION
  Report Type: 
  Country: None (occurrence: None)
  Receive Date: 20120718
  Receipt Date: 20120717
  Transmission Date: 20120928
  Serious: Yes (Other)
  Sender: FDA-Public Use
  Company Number: JP-PFIZER INC-2012128276

PATIENT
  Age: 48 Year
  Sex: Male

DRUGS (3)
  1. VARENICLINE TARTRATE [Suspect]
     Indication: SMOKING CESSATION THERAPY
     Dosage: 2 MG, 1X/DAY
     Route: 048
     Dates: start: 20120328
  2. NORVASC [Suspect]
     Indication: HYPERTENSION
     Dosage: 2.5 MG, 1X/DAY
     Dates: start: 20120225
  3. BISOPROLOL FUMARATE [Concomitant]
     Dosage: UNK
     Dates: start: 20120210

REACTIONS (3)
  - MUSCULOSKELETAL STIFFNESS [None]
  - EYELID PTOSIS [None]
  - MUSCLE SPASMS [None]
